FAERS Safety Report 23653828 (Version 1)
Quarter: 2024Q1

REPORT INFORMATION
  Report Type: Spontaneous
  Country: CN (occurrence: CN)
  Receive Date: 20240320
  Receipt Date: 20240320
  Transmission Date: 20240410
  Serious: Yes (Other)
  Sender: FDA-Public Use
  Company Number: CN-002147023-NVSC2024CN059350

PATIENT
  Age: 80 Year
  Sex: Male
  Weight: 70 kg

DRUGS (1)
  1. SACUBITRIL\VALSARTAN [Suspect]
     Active Substance: SACUBITRIL\VALSARTAN
     Indication: Asthenia
     Dosage: 100 MG, QD
     Route: 048
     Dates: start: 20240226, end: 20240305

REACTIONS (1)
  - Blood creatinine increased [Recovering/Resolving]

NARRATIVE: CASE EVENT DATE: 20240304
